FAERS Safety Report 21444898 (Version 1)
Quarter: 2022Q4

REPORT INFORMATION
  Report Type: Spontaneous
  Country: US (occurrence: None)
  Receive Date: 20221011
  Receipt Date: 20221011
  Transmission Date: 20230112
  Serious: No
  Sender: FDA-Public Use
  Company Number: None

PATIENT
  Age: 30 Year
  Sex: Female
  Weight: 47.6 kg

DRUGS (1)
  1. BEBTELOVIMAB [Suspect]
     Active Substance: BEBTELOVIMAB
     Indication: COVID-19
     Dosage: FREQUENCY : ONCE;?
     Route: 040
     Dates: start: 20221008, end: 20221008

REACTIONS (5)
  - Flushing [None]
  - Erythema [None]
  - Tachycardia [None]
  - Dyspnoea [None]
  - Urticaria [None]

NARRATIVE: CASE EVENT DATE: 20221008
